FAERS Safety Report 11049641 (Version 2)
Quarter: 2015Q3

REPORT INFORMATION
  Report Type: Spontaneous
  Country: US (occurrence: US)
  Receive Date: 20150420
  Receipt Date: 20150717
  Transmission Date: 20151125
  Serious: No
  Sender: FDA-Public Use
  Company Number: US-GILEAD-2015-0149483

PATIENT
  Sex: Male

DRUGS (3)
  1. SOVALDI [Suspect]
     Active Substance: SOFOSBUVIR
     Indication: HEPATITIS C
     Dosage: UNK
     Dates: start: 201401, end: 201406
  2. RIBAVIRIN. [Concomitant]
     Active Substance: RIBAVIRIN
     Indication: HEPATITIS C
     Dosage: UNK
     Dates: start: 201401, end: 201406
  3. PEGINTERFERON ALFA-2A [Concomitant]
     Active Substance: PEGINTERFERON ALFA-2A
     Indication: HEPATITIS C

REACTIONS (3)
  - Fatigue [Unknown]
  - Pyrexia [Unknown]
  - Influenza like illness [Unknown]
